FAERS Safety Report 9385025 (Version 5)
Quarter: 2013Q4

REPORT INFORMATION
  Report Type: Spontaneous
  Country: JP (occurrence: None)
  Receive Date: 20130701
  Receipt Date: 20131230
  Transmission Date: 20140711
  Serious: Yes (Hospitalization)
  Sender: FDA-Public Use
  Company Number: ABR_00987_2013

PATIENT
  Age: 33 Year
  Sex: Male
  Weight: 82.3 kg

DRUGS (1)
  1. GLIADEL [Suspect]
     Indication: MALIGNANT GLIOMA
     Dosage: INTRACEREBRAL
     Dates: start: 20130513, end: 20130513

REACTIONS (12)
  - Brain oedema [None]
  - Hemiplegia [None]
  - Aphasia [None]
  - Headache [None]
  - Hepatic function abnormal [None]
  - Haemorrhage intracranial [None]
  - Hypertension [None]
  - Alopecia areata [None]
  - Head injury [None]
  - Stress [None]
  - Implant site oedema [None]
  - Hemiplegia [None]
